FAERS Safety Report 9059872 (Version 2)
Quarter: 2013Q1

REPORT INFORMATION
  Report Type: Report from Study
  Country: GB (occurrence: GB)
  Receive Date: 20130212
  Receipt Date: 20130215
  Transmission Date: 20140127
  Serious: Yes (Life-Threatening, Hospitalization)
  Sender: FDA-Public Use
  Company Number: GB-CELGENEUS-167-21880-13020517

PATIENT
  Age: 58 Year
  Sex: Female

DRUGS (4)
  1. REVLIMID [Suspect]
     Indication: PLASMA CELL MYELOMA
     Route: 048
     Dates: start: 20100123, end: 20110708
  2. REVLIMID [Suspect]
     Indication: OFF LABEL USE
     Route: 048
  3. DEXAMETHASONE [Concomitant]
     Indication: PLASMA CELL MYELOMA
     Route: 065
  4. DEXAMETHASONE [Concomitant]
     Route: 065

REACTIONS (11)
  - No therapeutic response [Unknown]
  - Neuropathy peripheral [Unknown]
  - Leukopenia [Unknown]
  - Pyrexia [Unknown]
  - Fatigue [Unknown]
  - Constipation [Unknown]
  - Renal impairment [Unknown]
  - Anaemia [Unknown]
  - Embolism venous [Unknown]
  - Thrombocytopenia [Unknown]
  - Neutropenia [Unknown]
